FAERS Safety Report 9190140 (Version 2)
Quarter: 2013Q2

REPORT INFORMATION
  Report Type: Report from Study
  Country: FR (occurrence: FR)
  Receive Date: 20130326
  Receipt Date: 20130610
  Transmission Date: 20140414
  Serious: Yes (Hospitalization)
  Sender: FDA-Public Use
  Company Number: FR-BRISTOL-MYERS SQUIBB COMPANY-17480690

PATIENT
  Age: 55 Year
  Sex: Female

DRUGS (4)
  1. ORENCIA [Suspect]
     Indication: RHEUMATOID ARTHRITIS
     Dosage: ON 11MAR13 ALSO
     Dates: start: 20121120
  2. METHOTREXATE [Suspect]
     Indication: RHEUMATOID ARTHRITIS
     Route: 048
     Dates: start: 200907
  3. SPECIAFOLDINE [Concomitant]
     Indication: FOLATE DEFICIENCY
     Dosage: 1DF: 2 UNITS NOS
     Route: 048
  4. NORSET [Concomitant]
     Indication: DEPRESSION

REACTIONS (2)
  - Pleurisy [Recovered/Resolved]
  - Lung disorder [Recovered/Resolved]
